FAERS Safety Report 9203475 (Version 1)
Quarter: 2013Q1

REPORT INFORMATION
  Report Type: Spontaneous
  Country: GB (occurrence: None)
  Receive Date: 20130328
  Receipt Date: 20130328
  Transmission Date: 20140127
  Serious: Yes (Hospitalization, Other)
  Sender: FDA-Public Use
  Company Number: 08-AUR-01783

PATIENT
  Age: 47 Year
  Sex: Female

DRUGS (5)
  1. FLUOXETINE (FLUOXETINE) [Suspect]
     Indication: DEPRESSION
     Route: 048
  2. LEVOMEPROMAZINE [Suspect]
     Indication: ANTIEMETIC SUPPORTIVE CARE
     Route: 048
  3. HALOPERIDOL [Suspect]
     Indication: ANTIEMETIC SUPPORTIVE CARE
     Route: 058
  4. CYCLIZINE [Suspect]
     Indication: ANTIEMETIC SUPPORTIVE CARE
     Route: 058
  5. OXYCODONE [Concomitant]

REACTIONS (11)
  - Agitation [None]
  - Intestinal obstruction [None]
  - Anxiety [None]
  - Depression [None]
  - Vomiting [None]
  - Abdominal pain [None]
  - Restlessness [None]
  - Emotional distress [None]
  - Akathisia [None]
  - Nausea [None]
  - Drug interaction [None]
